FAERS Safety Report 6196963-7 (Version None)
Quarter: 2009Q2

REPORT INFORMATION
  Report Type: 
  Country: None (occurrence: None)
  Receive Date: 20090520
  Receipt Date: 20090513
  Transmission Date: 20091009
  Serious: Yes (Other)
  Sender: FDA-Public Use
  Company Number: PHHO2008BE11338

PATIENT
  Sex: Male
  Weight: 88 kg

DRUGS (9)
  1. RAD 666 RAD++PTR [Suspect]
     Indication: RENAL TRANSPLANT
     Dosage: 3 MG / DAY
     Route: 048
     Dates: start: 20070307, end: 20070404
  2. SULFAMETHOXAZOLE AND TRIMETHOPRIM [Concomitant]
  3. AMLODIPINE [Concomitant]
  4. ACYCLOVIR SODIUM [Concomitant]
  5. ATENOLOL [Concomitant]
  6. RANITIDINE [Concomitant]
  7. BUMETANIDE [Concomitant]
  8. MOXONIDINE [Concomitant]
  9. LEVOTHYROXINE SODIUM [Concomitant]

REACTIONS (3)
  - KIDNEY FIBROSIS [None]
  - LYMPHOCELE [None]
  - TRANSPLANT REJECTION [None]
